FAERS Safety Report 4385913-1 (Version None)
Quarter: 2004Q2

REPORT INFORMATION
  Report Type: 
  Country: None (occurrence: None)
  Receive Date: 20040622
  Receipt Date: 20040610
  Transmission Date: 20050107
  Serious: Yes (Hospitalization)
  Sender: FDA-Public Use
  Company Number: MK200406-0118-1

PATIENT
  Age: 64 Year
  Sex: Male

DRUGS (3)
  1. CLOMIPRAMINE HCL [Suspect]
     Dosage: 200MG, DAILY
  2. CLOZAPINE [Suspect]
     Dosage: 375MG, DAILY
  3. DOMPERIDONE [Concomitant]

REACTIONS (9)
  - CHOKING [None]
  - CIRCULATORY COLLAPSE [None]
  - DYSKINESIA [None]
  - DYSPHAGIA [None]
  - GASTROINTESTINAL MOTILITY DISORDER [None]
  - HICCUPS [None]
  - NASOPHARYNGEAL DISORDER [None]
  - OESOPHAGEAL DILATATION [None]
  - PNEUMONIA ASPIRATION [None]
